FAERS Safety Report 14566865 (Version 1)
Quarter: 2018Q1

REPORT INFORMATION
  Report Type: Other
  Country: IT (occurrence: IT)
  Receive Date: 20180223
  Receipt Date: 20180223
  Transmission Date: 20180509
  Serious: Yes (Hospitalization)
  Sender: FDA-Public Use
  Company Number: IT-GLENMARK PHARMACEUTICALS-2017GMK032061

PATIENT

DRUGS (5)
  1. EXPOSE [Suspect]
     Active Substance: EPERISONE HYDROCHLORIDE
     Indication: INTENTIONAL SELF-INJURY
     Dosage: 4 DF, IN TOTAL
     Route: 065
  2. KETOTIFEN HYDROGEN FUMARATE [Suspect]
     Active Substance: KETOTIFEN FUMARATE
     Indication: INTENTIONAL SELF-INJURY
     Dosage: 4 DF, IN TOTAL
     Route: 048
  3. TACHIPIRINA [Suspect]
     Active Substance: ACETAMINOPHEN
     Indication: INTENTIONAL SELF-INJURY
     Dosage: 8 DF, IN TOTAL
     Route: 048
  4. MONTELUKAST SODIUM. [Suspect]
     Active Substance: MONTELUKAST SODIUM
     Indication: INTENTIONAL SELF-INJURY
     Dosage: 4 DF, UNK
     Route: 048
  5. METFORMIN HYDROCHLORIDE. [Suspect]
     Active Substance: METFORMIN HYDROCHLORIDE
     Indication: INTENTIONAL SELF-INJURY
     Dosage: 850 MG, IN TOTAL
     Route: 048

REACTIONS (4)
  - Overdose [Unknown]
  - Vomiting [Unknown]
  - Intentional self-injury [Unknown]
  - Drug abuse [Unknown]

NARRATIVE: CASE EVENT DATE: 20170118
